FAERS Safety Report 5887554-3 (Version None)
Quarter: 2008Q3

REPORT INFORMATION
  Report Type: 
  Country: None (occurrence: None)
  Receive Date: 20080918
  Receipt Date: 20080910
  Transmission Date: 20090109
  Serious: Yes (Death)
  Sender: FDA-Public Use
  Company Number: US-ROCHE-585709

PATIENT
  Sex: Female
  Weight: 47.2 kg

DRUGS (1)
  1. CAPECITABINE [Suspect]
     Dosage: 1500 MG IN AM AND 1500 MG IN PM
     Route: 048
     Dates: start: 20071130

REACTIONS (1)
  - DEATH [None]
